FAERS Safety Report 4841054-8 (Version None)
Quarter: 2005Q4

REPORT INFORMATION
  Report Type: 
  Country: None (occurrence: None)
  Receive Date: 20051130
  Receipt Date: 20050908
  Transmission Date: 20060501
  Serious: No
  Sender: FDA-Public Use
  Company Number: US-BRISTOL-MYERS SQUIBB COMPANY-13104641

PATIENT
  Sex: Female
  Weight: 73 kg

DRUGS (4)
  1. ABILIFY [Suspect]
     Indication: SCHIZOAFFECTIVE DISORDER
     Route: 048
  2. VALIUM [Concomitant]
  3. PROPRANOLOL [Concomitant]
  4. LEXAPRO [Concomitant]

REACTIONS (2)
  - DENTAL CARIES [None]
  - TOOTH DISCOLOURATION [None]
